FAERS Safety Report 8548287-8 (Version None)
Quarter: 2012Q3

REPORT INFORMATION
  Report Type: 
  Country: None (occurrence: None)
  Receive Date: 20120719
  Receipt Date: 20120719
  Transmission Date: 20120928
  Serious: Yes (Other)
  Sender: FDA-Public Use
  Company Number: None

PATIENT
  Age: 62 Year
  Sex: Female
  Weight: 68.9467 kg

DRUGS (2)
  1. TRIAMCINOLONE ACETONIDE [Suspect]
     Indication: ASTHMA
     Dosage: 2 SPRAYS ONCE DAILY A DAY NOSTRILS BAR CODE 0093-2085-17
     Route: 045
     Dates: start: 20120106, end: 20120222
  2. TRIAMCINOLONE ACETONIDE [Suspect]
     Indication: VASOMOTOR RHINITIS
     Dosage: 2 SPRAYS ONCE DAILY A DAY NOSTRILS BAR CODE 0093-2085-17
     Route: 045
     Dates: start: 20120106, end: 20120222

REACTIONS (9)
  - NASAL INFLAMMATION [None]
  - RHINORRHOEA [None]
  - INSOMNIA [None]
  - SINUS HEADACHE [None]
  - PRODUCT SUBSTITUTION ISSUE [None]
  - THROAT IRRITATION [None]
  - MALAISE [None]
  - SINUSITIS [None]
  - FATIGUE [None]
